FAERS Safety Report 12844444 (Version 2)
Quarter: 2016Q4

REPORT INFORMATION
  Report Type: Report from Study
  Country: US (occurrence: US)
  Receive Date: 20161013
  Receipt Date: 20161019
  Transmission Date: 20170207
  Serious: Yes (Other)
  Sender: FDA-Public Use
  Company Number: PHEH2016US026169

PATIENT
  Sex: Female

DRUGS (1)
  1. GILENYA [Suspect]
     Active Substance: FINGOLIMOD HYDROCHLORIDE
     Indication: MULTIPLE SCLEROSIS
     Dosage: 0.5 MG, QD
     Route: 048
     Dates: start: 20160916, end: 20160930

REACTIONS (6)
  - Syncope [Unknown]
  - Heart rate abnormal [Unknown]
  - Fatigue [Unknown]
  - Loss of consciousness [Unknown]
  - Paraesthesia oral [Unknown]
  - Oxygen saturation decreased [Unknown]
